FAERS Safety Report 10901176 (Version 1)
Quarter: 2015Q1

REPORT INFORMATION
  Report Type: Spontaneous
  Country: US (occurrence: None)
  Receive Date: 20150303
  Receipt Date: 20150303
  Transmission Date: 20150721
  Serious: Yes (Other)
  Sender: FDA-Public Use
  Company Number: None

PATIENT
  Age: 36 Year
  Sex: Female

DRUGS (1)
  1. LEVOTHYROXINE [Suspect]
     Active Substance: LEVOTHYROXINE
     Indication: HYPOTHYROIDISM
     Dosage: 1 TAB  QD  ORAL
     Route: 048

REACTIONS (4)
  - Product substitution issue [None]
  - Alopecia [None]
  - Emotional distress [None]
  - Product quality issue [None]

NARRATIVE: CASE EVENT DATE: 20150201
